FAERS Safety Report 4603320-0 (Version None)
Quarter: 2005Q1

REPORT INFORMATION
  Report Type: 
  Country: None (occurrence: None)
  Receive Date: 20050307
  Receipt Date: 20050222
  Transmission Date: 20050727
  Serious: Yes (Other)
  Sender: FDA-Public Use
  Company Number: 2005036309

PATIENT
  Age: 50 Year
  Sex: Female

DRUGS (8)
  1. VFEND [Suspect]
     Indication: RESPIRATORY TRACT INFECTION FUNGAL
     Dosage: 400 M G (200 MG, 2 IN 1 D), ORAL
     Route: 048
  2. PREDNISONE [Concomitant]
  3. AMPHOTERICINE B, LIPOSOME (AMPHOTERICINE  B, LIPSOME) [Concomitant]
  4. TEICOPLANIN (TEICOPLANIN) [Concomitant]
  5. FILGRASTIM (FILGRASTIM) [Concomitant]
  6. ALPRAZOLAM [Concomitant]
  7. LANSOPRAZOLE [Concomitant]
  8. PIP/TAZO (PIPERACILLIN SODIUM, TAZOBACTAM SODIUM) [Concomitant]

REACTIONS (6)
  - AGGRESSION [None]
  - AGITATION [None]
  - CONFUSIONAL STATE [None]
  - EUPHORIC MOOD [None]
  - HALLUCINATION [None]
  - HEPATIC FUNCTION ABNORMAL [None]
